FAERS Safety Report 6044845-3 (Version None)
Quarter: 2009Q1

REPORT INFORMATION
  Report Type: 
  Country: None (occurrence: None)
  Receive Date: 20090121
  Receipt Date: 20090114
  Transmission Date: 20090719
  Serious: Yes (Other)
  Sender: FDA-Public Use
  Company Number: GB-RANBAXY-2009RR-20578

PATIENT
  Age: 70 Year
  Sex: Female

DRUGS (10)
  1. CLARITHROMYCIN [Suspect]
     Indication: PNEUMONIA
     Dosage: 500 MG, UNK
     Route: 048
     Dates: start: 20081216, end: 20081216
  2. ALENDRONATE SODIUM [Concomitant]
     Dosage: 70 MG, 1/WEEK
  3. ALLOPURINOL [Concomitant]
     Dosage: 200 MG, UNK
  4. AMITRIPTYLINE HCL [Concomitant]
     Dosage: 25 MG, QD
     Route: 048
  5. ASPIRIN [Concomitant]
     Dosage: 75 G, QD
     Route: 048
  6. ATORVASTATIN CALCIUM [Concomitant]
     Dosage: 80 MG, QD
  7. AUGMENTIN '125' [Concomitant]
     Dosage: 1.2 G, TID
     Route: 042
  8. ISOSORBIDE MONONITRATE [Concomitant]
     Dosage: 20 MG, QD
     Route: 048
     Dates: start: 20081215
  9. OMEPRAZOLE [Concomitant]
     Dosage: 40 MG, QD
     Route: 048
     Dates: start: 20081215
  10. TEMAZEPAM [Concomitant]
     Dosage: 10 MG, QD
     Route: 048

REACTIONS (2)
  - BODY TEMPERATURE INCREASED [None]
  - HYPOTENSION [None]
